FAERS Safety Report 18063029 (Version 1)
Quarter: 2020Q3

REPORT INFORMATION
  Report Type: Spontaneous
  Country: US (occurrence: US)
  Receive Date: 20200723
  Receipt Date: 20200723
  Transmission Date: 20201103
  Serious: No
  Sender: FDA-Public Use
  Company Number: US-IGSA-SR10009868

PATIENT
  Sex: Female

DRUGS (16)
  1. BREO ELLIPTA [Concomitant]
     Active Substance: FLUTICASONE FUROATE\VILANTEROL TRIFENATATE
  2. HUMALOG MIX [Concomitant]
     Active Substance: INSULIN LISPRO
  3. LINZESS [Concomitant]
     Active Substance: LINACLOTIDE
     Dosage: 145 ?G, UNK
     Route: 048
  4. PREDNISONE                         /00044702/ [Concomitant]
     Active Substance: PREDNISONE
     Dosage: 10 MG, UNK
     Route: 048
  5. VASCULERA [Concomitant]
     Route: 048
  6. GAMUNEX?C [Suspect]
     Active Substance: HUMAN IMMUNOGLOBULIN G
     Indication: POLYMYOSITIS
     Dosage: 45 G, UNK
     Dates: start: 201908
  7. JARDIANCE [Concomitant]
     Active Substance: EMPAGLIFLOZIN
     Dosage: 25 MG, UNK
     Route: 048
  8. EZETIMIBE. [Concomitant]
     Active Substance: EZETIMIBE
     Dosage: 10 MG, UNK
     Route: 048
  9. NIFEDIPINE. [Concomitant]
     Active Substance: NIFEDIPINE
     Dosage: 90 MG, UNK
  10. LOSARTAN                           /01121602/ [Concomitant]
     Active Substance: LOSARTAN
     Dosage: 100 MG, UNK
     Route: 048
  11. SIMVASTATIN. [Concomitant]
     Active Substance: SIMVASTATIN
     Dosage: 20 MG, UNK
     Route: 048
  12. VITAMIN D                          /00107901/ [Concomitant]
     Active Substance: ERGOCALCIFEROL
     Dosage: 50000 IU, UNK
     Route: 048
  13. MULTIVITAMIN                       /00097801/ [Concomitant]
     Active Substance: VITAMINS
  14. FOLIC ACID. [Concomitant]
     Active Substance: FOLIC ACID
     Dosage: 800 ?G, UNK
     Route: 048
  15. LASIX [Concomitant]
     Active Substance: FUROSEMIDE
  16. LEVOTHYROXIN [Concomitant]
     Active Substance: LEVOTHYROXINE
     Dosage: 125 ?G, UNK
     Route: 048

REACTIONS (1)
  - Asthenia [Recovered/Resolved]
